FAERS Safety Report 21998993 (Version 1)
Quarter: 2023Q1

REPORT INFORMATION
  Report Type: Spontaneous
  Country: CN (occurrence: CN)
  Receive Date: 20230216
  Receipt Date: 20230216
  Transmission Date: 20230418
  Serious: Yes (Hospitalization, Other)
  Sender: FDA-Public Use
  Company Number: CN-GLAXOSMITHKLINE-CN2023GSK022685

PATIENT

DRUGS (5)
  1. ZEJULA [Suspect]
     Active Substance: NIRAPARIB
     Indication: Fallopian tube cancer stage III
     Dosage: 200 MG, QD
     Dates: start: 20230109, end: 20230206
  2. THROMBOPOIETIN [Concomitant]
     Active Substance: THROMBOPOIETIN
     Indication: Product used for unknown indication
     Dosage: UNK, (15000 U, IH INJECTION)
     Route: 058
     Dates: start: 20230201
  3. THROMBOPOIETIN [Concomitant]
     Active Substance: THROMBOPOIETIN
     Dosage: 15000 U, QD, IH
     Dates: start: 20230202
  4. OPRELVEKIN [Concomitant]
     Active Substance: OPRELVEKIN
     Indication: Myelosuppression
     Dosage: 3 MG, IH
     Dates: start: 20230201
  5. OPRELVEKIN [Concomitant]
     Active Substance: OPRELVEKIN
     Dosage: 1.5 MG, QD, IH
     Dates: start: 20230202

REACTIONS (7)
  - Myelosuppression [Recovering/Resolving]
  - Purpura [Unknown]
  - Gingival bleeding [Unknown]
  - Nausea [Recovering/Resolving]
  - Vomiting [Recovering/Resolving]
  - Decreased appetite [Unknown]
  - Headache [Recovering/Resolving]

NARRATIVE: CASE EVENT DATE: 20230124
